FAERS Safety Report 14924777 (Version 1)
Quarter: 2018Q2

REPORT INFORMATION
  Report Type: Report from Study
  Country: ES (occurrence: ES)
  Receive Date: 20180522
  Receipt Date: 20180522
  Transmission Date: 20180711
  Serious: Yes (Hospitalization)
  Sender: FDA-Public Use
  Company Number: ES-TEVA-2018-ES-894855

PATIENT
  Age: 60 Year
  Sex: Male

DRUGS (5)
  1. IVABRADINA (2992A) [Suspect]
     Active Substance: IVABRADINE
     Dosage: 10 MILLIGRAM DAILY;
     Route: 048
     Dates: start: 20130111, end: 20160911
  2. A.A.S. 100 MG COMPRIMIDOS , 30 COMPRIMIDOS [Suspect]
     Active Substance: ASPIRIN
     Dosage: 100 MILLIGRAM DAILY;
     Route: 048
     Dates: start: 20091127, end: 20160911
  3. IBUPROFENO (1769A) [Concomitant]
     Active Substance: IBUPROFEN
     Dosage: 600 MILLIGRAM DAILY;
     Route: 048
     Dates: start: 20160910, end: 20160910
  4. BISOPROLOL (2328A) [Suspect]
     Active Substance: BISOPROLOL
     Dosage: 5 MILLIGRAM DAILY;
     Route: 048
     Dates: start: 20140226, end: 20160911
  5. LISINOPRIL AND HYDLISINOPRIL HIDROCLOROTIAZIDA CINFA 20 MG/12, 5 MG CO [Suspect]
     Active Substance: HYDROCHLOROTHIAZIDE\LISINOPRIL
     Indication: HYPERTENSION
     Dosage: 1 DOSAGE FORMS DAILY;
     Route: 048
     Dates: start: 20160803, end: 20160911

REACTIONS (2)
  - Acute kidney injury [Recovered/Resolved]
  - Hyperkalaemia [Recovered/Resolved]

NARRATIVE: CASE EVENT DATE: 20160914
